FAERS Safety Report 4746440-2 (Version None)
Quarter: 2005Q3

REPORT INFORMATION
  Report Type: 
  Country: None (occurrence: None)
  Receive Date: 20050816
  Receipt Date: 20050816
  Transmission Date: 20060218
  Serious: Yes (Hospitalization)
  Sender: FDA-Public Use
  Company Number: None

PATIENT
  Sex: Female
  Weight: 73.4827 kg

DRUGS (3)
  1. LAMOTRIGINE [Suspect]
     Indication: BIPOLAR II DISORDER
     Dosage: 50 MG QD ORAL
     Route: 048
     Dates: start: 20050727, end: 20050812
  2. CALCIUM GLUCONATE [Concomitant]
  3. BAND-AID ANTI-ITCH GEL - CAMPHOR [Concomitant]

REACTIONS (3)
  - ALANINE AMINOTRANSFERASE INCREASED [None]
  - ASPARTATE AMINOTRANSFERASE INCREASED [None]
  - PYREXIA [None]
